FAERS Safety Report 17427016 (Version 1)
Quarter: 2020Q1

REPORT INFORMATION
  Report Type: Spontaneous
  Country: CA (occurrence: CA)
  Receive Date: 20200218
  Receipt Date: 20200218
  Transmission Date: 20200409
  Serious: Yes (Other)
  Sender: FDA-Public Use
  Company Number: CA-GLAXOSMITHKLINE-CA2020AMR025036

PATIENT
  Age: 28 Year
  Sex: Female

DRUGS (11)
  1. BENADRYL [Concomitant]
     Active Substance: DIPHENHYDRAMINE HYDROCHLORIDE
     Indication: PRODUCT USED FOR UNKNOWN INDICATION
     Dosage: UNK
  2. BISOPROLOL [Concomitant]
     Active Substance: BISOPROLOL
     Indication: PRODUCT USED FOR UNKNOWN INDICATION
     Dosage: UNK
  3. VENLAFAXINE HYDROCHLORIDE. [Concomitant]
     Active Substance: VENLAFAXINE HYDROCHLORIDE
     Indication: PRODUCT USED FOR UNKNOWN INDICATION
     Dosage: UNK
  4. ACYCLOVIR. [Suspect]
     Active Substance: ACYCLOVIR
     Indication: ANTIVIRAL TREATMENT
     Dosage: 200 MG, BID
     Route: 048
  5. ALEMTUZUMAB [Suspect]
     Active Substance: ALEMTUZUMAB
     Indication: MULTIPLE SCLEROSIS
     Dosage: 120 MG, 1D
     Route: 042
  6. ACETAMINOPHEN AND CODEINE [Concomitant]
     Active Substance: ACETAMINOPHEN\CODEINE PHOSPHATE
     Indication: PRODUCT USED FOR UNKNOWN INDICATION
     Dosage: UNK
  7. ERGOCALCIFEROL. [Concomitant]
     Active Substance: ERGOCALCIFEROL
     Indication: PRODUCT USED FOR UNKNOWN INDICATION
     Dosage: UNK
  8. GRAVOL [Concomitant]
     Active Substance: DIMENHYDRINATE
     Indication: PRODUCT USED FOR UNKNOWN INDICATION
     Dosage: UNK
  9. RANITIDINE. [Concomitant]
     Active Substance: RANITIDINE
     Indication: PRODUCT USED FOR UNKNOWN INDICATION
     Dosage: UNK
  10. METHYLPREDNISOLONE SODIUM SUCCINATE. [Suspect]
     Active Substance: METHYLPREDNISOLONE SODIUM SUCCINATE
     Indication: ANTIINFLAMMATORY THERAPY
     Dosage: 1.0 G, 1D
     Route: 042
  11. PROPRANOLOL HYDROCHLORIDE. [Concomitant]
     Active Substance: PROPRANOLOL HYDROCHLORIDE
     Indication: PRODUCT USED FOR UNKNOWN INDICATION
     Dosage: UNK

REACTIONS (45)
  - Arthralgia [Unknown]
  - Blood thyroid stimulating hormone decreased [Unknown]
  - Blood thyroid stimulating hormone increased [Unknown]
  - Chills [Unknown]
  - Optic neuritis [Unknown]
  - Pruritus [Recovered/Resolved]
  - Urine analysis abnormal [Unknown]
  - Abdominal distension [Unknown]
  - Dizziness [Unknown]
  - Eosinophil count abnormal [Unknown]
  - Eye swelling [Unknown]
  - Fatigue [Unknown]
  - Feeling hot [Unknown]
  - Peripheral swelling [Unknown]
  - Appetite disorder [Unknown]
  - Lymphocyte count decreased [Unknown]
  - Neutrophil percentage increased [Unknown]
  - Swollen tongue [Recovered/Resolved]
  - Contusion [Unknown]
  - Cough [Recovered/Resolved]
  - Headache [Unknown]
  - Lymphocyte percentage decreased [Unknown]
  - Muscle spasms [Unknown]
  - Myelocyte count increased [Unknown]
  - Nervousness [Unknown]
  - Pain in extremity [Unknown]
  - Palpitations [Recovered/Resolved]
  - Chest discomfort [Unknown]
  - Dyspnoea [Unknown]
  - Paraesthesia [Unknown]
  - Thyroxine free decreased [Unknown]
  - Dysphagia [Unknown]
  - Erythema [Unknown]
  - Gait disturbance [Unknown]
  - Menstrual disorder [Unknown]
  - Urine leukocyte esterase [Unknown]
  - Anxiety [Unknown]
  - Monocyte count abnormal [Unknown]
  - Nasal congestion [Recovered/Resolved]
  - Nausea [Unknown]
  - Rash [Unknown]
  - Thyroxine free increased [Unknown]
  - Tremor [Unknown]
  - Urticaria [Unknown]
  - White blood cell count decreased [Unknown]
